FAERS Safety Report 19676410 (Version 1)
Quarter: 2021Q3

REPORT INFORMATION
  Report Type: Report from Study
  Country: None (occurrence: IL)
  Receive Date: 20210810
  Receipt Date: 20210810
  Transmission Date: 20211014
  Serious: Yes (Hospitalization)
  Sender: FDA-Public Use
  Company Number: IL-ABBVIE-21K-082-4025663-00

PATIENT
  Sex: Female

DRUGS (2)
  1. DUODOPA [Suspect]
     Active Substance: CARBIDOPA\LEVODOPA
     Indication: PARKINSON^S DISEASE
     Route: 050
     Dates: start: 20170701
  2. DUODOPA [Suspect]
     Active Substance: CARBIDOPA\LEVODOPA
     Dosage: MORNING DOSE(ML) 9.0, CONTINUOUS DOSE (ML/H) 1.1, EXTRA DOSE (ML) 0.5.
     Route: 050

REACTIONS (5)
  - Stoma site erythema [Recovering/Resolving]
  - Confusional state [Unknown]
  - Dyskinesia [Unknown]
  - Hallucination [Not Recovered/Not Resolved]
  - Medical device battery replacement [Recovered/Resolved]

NARRATIVE: CASE EVENT DATE: 2021
